FAERS Safety Report 10370312 (Version 1)
Quarter: 2014Q3

REPORT INFORMATION
  Report Type: Spontaneous
  Country: FR (occurrence: FR)
  Receive Date: 20140808
  Receipt Date: 20140808
  Transmission Date: 20150326
  Serious: Yes (Hospitalization)
  Sender: FDA-Public Use
  Company Number: FR-ASTRAZENECA-2014SE56774

PATIENT
  Age: 76 Year
  Sex: Male

DRUGS (6)
  1. KEPPRA [Suspect]
     Active Substance: LEVETIRACETAM
     Indication: EPILEPSY
     Route: 042
     Dates: start: 20140307, end: 20140411
  2. BETABLOCKER [Concomitant]
     Indication: ISCHAEMIC CARDIOMYOPATHY
  3. CRESTOR [Concomitant]
     Active Substance: ROSUVASTATIN CALCIUM
     Indication: ISCHAEMIC CARDIOMYOPATHY
     Route: 048
  4. PLAVIX [Concomitant]
     Active Substance: CLOPIDOGREL BISULFATE
     Indication: ISCHAEMIC CARDIOMYOPATHY
  5. EZETROL [Concomitant]
     Active Substance: EZETIMIBE
     Indication: ISCHAEMIC CARDIOMYOPATHY
  6. INEXIUM [Suspect]
     Active Substance: ESOMEPRAZOLE
     Route: 042
     Dates: start: 20140306, end: 20140422

REACTIONS (3)
  - Renal failure [Not Recovered/Not Resolved]
  - Epilepsy [Unknown]
  - Tubulointerstitial nephritis [Not Recovered/Not Resolved]

NARRATIVE: CASE EVENT DATE: 20140307
